FAERS Safety Report 11651526 (Version 1)
Quarter: 2015Q4

REPORT INFORMATION
  Report Type: Spontaneous
  Country: US (occurrence: None)
  Receive Date: 20151021
  Receipt Date: 20151021
  Transmission Date: 20160304
  Serious: No
  Sender: FDA-Public Use
  Company Number: None

PATIENT
  Age: 29 Year
  Sex: Male
  Weight: 70.31 kg

DRUGS (1)
  1. OMEPRAZOLE. [Suspect]
     Active Substance: OMEPRAZOLE
     Indication: HELICOBACTER INFECTION
     Dosage: 1 PILL
     Route: 048
     Dates: start: 20151010, end: 20151018

REACTIONS (2)
  - Muscle spasms [None]
  - Anxiety [None]

NARRATIVE: CASE EVENT DATE: 20151018
